FAERS Safety Report 20141351 (Version 1)
Quarter: 2021Q4

REPORT INFORMATION
  Report Type: Spontaneous
  Country: US (occurrence: None)
  Receive Date: 20211126
  Receipt Date: 20211126
  Transmission Date: 20220303
  Serious: Yes (Other)
  Sender: FDA-Public Use
  Company Number: None

PATIENT
  Age: 47 Year
  Sex: Male
  Weight: 92.25 kg

DRUGS (5)
  1. TESTOSTERONE PROPIONATE [Suspect]
     Active Substance: TESTOSTERONE PROPIONATE
     Indication: Muscle building therapy
     Dosage: OTHER FREQUENCY : 2 VECES AL MES;?
     Route: 030
     Dates: start: 20191110, end: 20200729
  2. TESTOSTERONE ENANTHATE [Suspect]
     Active Substance: TESTOSTERONE ENANTHATE
  3. TRESTOLONE ACETATE [Suspect]
     Active Substance: TRESTOLONE ACETATE
  4. TESTOSTERONE ENANTHATE [Suspect]
     Active Substance: TESTOSTERONE ENANTHATE
  5. DIANABOL [Suspect]
     Active Substance: METHANDROSTENOLONE

REACTIONS (5)
  - Overdose [None]
  - Limb injury [None]
  - Chest injury [None]
  - Skin discolouration [None]
  - Prescription drug used without a prescription [None]

NARRATIVE: CASE EVENT DATE: 20200430
